FAERS Safety Report 20758386 (Version 1)
Quarter: 2022Q2

REPORT INFORMATION
  Report Type: Spontaneous
  Country: CN (occurrence: CN)
  Receive Date: 20220427
  Receipt Date: 20220427
  Transmission Date: 20220721
  Serious: Yes (Other)
  Sender: FDA-Public Use
  Company Number: CN-BAYER-2022A058798

PATIENT
  Age: 60 Year
  Sex: Male

DRUGS (2)
  1. NEXAVAR [Suspect]
     Active Substance: SORAFENIB
     Indication: Hepatic cancer
     Dosage: UNK
     Dates: start: 202006, end: 202007
  2. PRIMOVIST [Concomitant]
     Active Substance: GADOXETATE DISODIUM
     Dosage: UNK
     Dates: start: 20200727, end: 20200727

REACTIONS (13)
  - Metastases to lung [None]
  - Hilar lymphadenopathy [None]
  - Ascites [None]
  - Pneumonia [None]
  - Aortic arteriosclerosis [None]
  - Arteriosclerosis coronary artery [None]
  - Hepatic cyst [None]
  - Spleen disorder [None]
  - Renal cyst [None]
  - Bronchial secretion retention [None]
  - Bronchitis [None]
  - Pulmonary calcification [None]
  - Lymphadenopathy mediastinal [None]

NARRATIVE: CASE EVENT DATE: 20200727
